FAERS Safety Report 24341649 (Version 4)
Quarter: 2024Q4

REPORT INFORMATION
  Report Type: Spontaneous
  Country: US (occurrence: US)
  Receive Date: 20240920
  Receipt Date: 20241018
  Transmission Date: 20250115
  Serious: No
  Sender: UNITED THERAPEUTICS
  Company Number: US-UNITED THERAPEUTICS-UNT-2024-029214

PATIENT
  Age: 48 Year
  Sex: Female
  Weight: 87.528 kg

DRUGS (28)
  1. ORENITRAM [Suspect]
     Active Substance: TREPROSTINIL
     Indication: Pulmonary arterial hypertension
     Dosage: 8 MG, TID
  2. ORENITRAM [Suspect]
     Active Substance: TREPROSTINIL
     Dosage: UNK
  3. ORENITRAM [Suspect]
     Active Substance: TREPROSTINIL
     Indication: Pulmonary arterial hypertension
     Dosage: UNK
  4. ORENITRAM [Suspect]
     Active Substance: TREPROSTINIL
     Indication: Pulmonary arterial hypertension
     Dosage: UNK
  5. ADEMPAS [Suspect]
     Active Substance: RIOCIGUAT
     Indication: Product used for unknown indication
     Dosage: UNK
  6. ZYRTEC [Concomitant]
     Active Substance: CETIRIZINE HYDROCHLORIDE
     Indication: Product used for unknown indication
     Dosage: UNK
  7. NASACORT [Concomitant]
     Active Substance: TRIAMCINOLONE ACETONIDE
     Indication: Product used for unknown indication
     Dosage: UNK
  8. SYNTHROID [Concomitant]
     Active Substance: LEVOTHYROXINE SODIUM
     Indication: Product used for unknown indication
     Dosage: UNK
  9. IMODIUM [Concomitant]
     Active Substance: LOPERAMIDE HYDROCHLORIDE
     Indication: Product used for unknown indication
     Dosage: UNK
  10. TYLENOL [Concomitant]
     Active Substance: ACETAMINOPHEN
     Indication: Product used for unknown indication
     Dosage: UNK
  11. PEPCID [Concomitant]
     Active Substance: FAMOTIDINE
     Indication: Product used for unknown indication
     Dosage: UNK
  12. FLUOXETINE HYDROCHLORIDE [Concomitant]
     Active Substance: FLUOXETINE HYDROCHLORIDE
     Indication: Product used for unknown indication
     Dosage: UNK
  13. LAMOTRIGINE [Concomitant]
     Active Substance: LAMOTRIGINE
     Indication: Product used for unknown indication
     Dosage: UNK
  14. IMODIUM MULTI-SYMPTOM RELIEF [Concomitant]
     Active Substance: DIMETHICONE\LOPERAMIDE HYDROCHLORIDE
     Indication: Product used for unknown indication
     Dosage: UNK
  15. PFIZER-BIONTECH COVID-19 VACCINE [Concomitant]
     Active Substance: TOZINAMERAN
     Indication: COVID-19 immunisation
     Dosage: UNK
  16. ASTEPRO [Concomitant]
     Active Substance: AZELASTINE HYDROCHLORIDE
     Indication: Product used for unknown indication
     Dosage: UNK
  17. ALBUTEROL SULFATE [Concomitant]
     Active Substance: ALBUTEROL SULFATE
     Indication: Product used for unknown indication
     Dosage: UNK
  18. FLONASE ALLERGY RELIEF [Concomitant]
     Active Substance: FLUTICASONE PROPIONATE
     Indication: Product used for unknown indication
     Dosage: UNK
  19. GABAPENTIN [Concomitant]
     Active Substance: GABAPENTIN
     Indication: Product used for unknown indication
     Dosage: UNK
  20. OPSUMIT [Concomitant]
     Active Substance: MACITENTAN
     Indication: Product used for unknown indication
     Dosage: UNK
  21. TRAMADOL HCL [Concomitant]
     Active Substance: TRAMADOL HYDROCHLORIDE
     Indication: Product used for unknown indication
     Dosage: UNK
  22. TUMS [Concomitant]
     Active Substance: CALCIUM CARBONATE
     Indication: Product used for unknown indication
     Dosage: UNK
  23. LIDOCAINE [Concomitant]
     Active Substance: LIDOCAINE
     Indication: Product used for unknown indication
     Dosage: UNK
  24. BENADRYL [Concomitant]
     Active Substance: DIPHENHYDRAMINE HYDROCHLORIDE
     Indication: Product used for unknown indication
     Dosage: UNK
  25. FUROSEMIDE [Concomitant]
     Active Substance: FUROSEMIDE
     Indication: Product used for unknown indication
     Dosage: UNK
  26. ONDANSETRON HYDROCHLORIDE [Concomitant]
     Active Substance: ONDANSETRON HYDROCHLORIDE
     Indication: Product used for unknown indication
     Dosage: UNK
  27. LORATADINE [Concomitant]
     Active Substance: LORATADINE
     Indication: Product used for unknown indication
     Dosage: UNK
  28. SODIUM CHLORIDE [Concomitant]
     Active Substance: SODIUM CHLORIDE
     Indication: Product used for unknown indication
     Dosage: UNK

REACTIONS (9)
  - Gastroenteritis viral [Recovered/Resolved]
  - Malaise [Unknown]
  - Diarrhoea [Unknown]
  - Vomiting [Unknown]
  - Flushing [Unknown]
  - Skin irritation [Unknown]
  - Headache [Unknown]
  - Frustration tolerance decreased [Unknown]
  - Product dose omission issue [Recovered/Resolved]

NARRATIVE: CASE EVENT DATE: 20240901
